FAERS Safety Report 5022926-0 (Version None)
Quarter: 2006Q2

REPORT INFORMATION
  Report Type: 
  Country: None (occurrence: None)
  Receive Date: 20060426
  Receipt Date: 20060119
  Transmission Date: 20061013
  Serious: Yes (Other)
  Sender: FDA-Public Use
  Company Number: 2006010703

PATIENT
  Age: 83 Year
  Sex: Female
  Weight: 64.8644 kg

DRUGS (8)
  1. LYRICA [Suspect]
     Indication: INTERVERTEBRAL DISC DEGENERATION
     Dosage: 50 MG (50 MG, 1 IN 1 D), ORAL
     Route: 048
     Dates: start: 20060117
  2. LYRICA [Suspect]
     Indication: SCOLIOSIS
     Dosage: 50 MG (50 MG, 1 IN 1 D), ORAL
     Route: 048
     Dates: start: 20060117
  3. SYNTHROID [Concomitant]
  4. NEXIUM [Concomitant]
  5. NAPROSYN [Concomitant]
  6. PREMARIN [Concomitant]
  7. LEXAPRO [Concomitant]
  8. LISINOPRIL [Concomitant]

REACTIONS (2)
  - COORDINATION ABNORMAL [None]
  - VISION BLURRED [None]
